FAERS Safety Report 20653551 (Version 1)
Quarter: 2022Q1

REPORT INFORMATION
  Report Type: Spontaneous
  Country: US (occurrence: US)
  Receive Date: 20220330
  Receipt Date: 20220330
  Transmission Date: 20220423
  Serious: No
  Sender: FDA-Public Use
  Company Number: US-SA-SAC20220324000008

PATIENT
  Sex: Male

DRUGS (11)
  1. DUPIXENT [Suspect]
     Active Substance: DUPILUMAB
     Dosage: 300 MG, QOW
     Route: 058
     Dates: start: 202112
  2. VITAMIN D NOS [Concomitant]
     Active Substance: VITAMIN D NOS
  3. PREDNISONE [Concomitant]
     Active Substance: PREDNISONE
  4. METOPROLOL SUCCINATE [Concomitant]
     Active Substance: METOPROLOL SUCCINATE
  5. MELOXICAM [Concomitant]
     Active Substance: MELOXICAM
  6. HYDROXYZINE HYDROCHLORIDE [Concomitant]
     Active Substance: HYDROXYZINE HYDROCHLORIDE
  7. OMEPRAZOLE [Concomitant]
     Active Substance: OMEPRAZOLE
  8. POTASSIUM CHLORIDE [Concomitant]
     Active Substance: POTASSIUM CHLORIDE
  9. LASIX [Concomitant]
     Active Substance: FUROSEMIDE
  10. PFIZER-BIONTECH COVID-19 VACCINE [Concomitant]
     Active Substance: TOZINAMERAN
     Indication: Immunisation
  11. FLUAD QUAD [Concomitant]
     Indication: Immunisation

REACTIONS (2)
  - Rash macular [Not Recovered/Not Resolved]
  - Injection site bruising [Unknown]
